FAERS Safety Report 9565355 (Version 3)
Quarter: 2014Q1

REPORT INFORMATION
  Report Type: Spontaneous
  Country: BE (occurrence: BE)
  Receive Date: 20130930
  Receipt Date: 20140224
  Transmission Date: 20141002
  Serious: Yes (Hospitalization)
  Sender: FDA-Public Use
  Company Number: BE-ABBVIE-13X-013-1086522-00

PATIENT
  Age: 29 Year
  Sex: Male
  Weight: 60 kg

DRUGS (1)
  1. CREON 25000 [Suspect]
     Indication: CYSTIC FIBROSIS
     Dosage: 1250000 UNIT LIPASE/DAY, SO 50 PILLS/DAY:10P IN MOR 20P AT NOON, 20 P IN THE EVE
     Route: 048

REACTIONS (2)
  - Intestinal obstruction [Recovered/Resolved]
  - Diarrhoea [Unknown]
